FAERS Safety Report 9352167 (Version 1)
Quarter: 2013Q2

REPORT INFORMATION
  Report Type: Spontaneous
  Country: GB (occurrence: None)
  Receive Date: 20130612
  Receipt Date: 20130612
  Transmission Date: 20140414
  Serious: Yes (Other)
  Sender: FDA-Public Use
  Company Number: AUR-APL-2013-04758

PATIENT
  Age: 60 Year
  Sex: Female
  Weight: 84.82 kg

DRUGS (2)
  1. NAPROXEN [Suspect]
     Indication: PRODUCT USED FOR UNKNOWN INDICATION
     Dates: start: 20130415
  2. LANSOPRAZOLE (LANSOPRAZOLE) [Concomitant]

REACTIONS (3)
  - Hypersensitivity [None]
  - Lip swelling [None]
  - Swelling face [None]
